FAERS Safety Report 25936744 (Version 1)
Quarter: 2025Q4

REPORT INFORMATION
  Report Type: Spontaneous
  Country: JP (occurrence: JP)
  Receive Date: 20251017
  Receipt Date: 20251017
  Transmission Date: 20260117
  Serious: Yes (Other)
  Sender: JOHNSON AND JOHNSON
  Company Number: JP-JNJFOC-20251022058

PATIENT

DRUGS (1)
  1. BALVERSA [Suspect]
     Active Substance: ERDAFITINIB
     Indication: Transitional cell carcinoma
     Route: 048
     Dates: start: 20250805, end: 2025

REACTIONS (2)
  - Retinal detachment [Recovering/Resolving]
  - Blood phosphorus increased [Recovering/Resolving]

NARRATIVE: CASE EVENT DATE: 20250101
